FAERS Safety Report 6055881-5 (Version None)
Quarter: 2009Q1

REPORT INFORMATION
  Report Type: 
  Country: None (occurrence: None)
  Receive Date: 20090128
  Receipt Date: 20090123
  Transmission Date: 20090719
  Serious: Yes (Life-Threatening, Hospitalization)
  Sender: FDA-Public Use
  Company Number: US-B.I. PHARMACEUTICALS,INC./RIDGEFIELD-2008-BP-18033BP

PATIENT
  Age: 57 Year
  Sex: Female

DRUGS (3)
  1. VIRAMUNE [Suspect]
     Indication: HIV INFECTION
     Dosage: 400MG
     Dates: start: 20070730
  2. COMBIVENT [Concomitant]
     Dates: start: 20060801
  3. VIREAD [Concomitant]
     Dates: end: 20070730

REACTIONS (2)
  - HEPATIC FAILURE [None]
  - STEVENS-JOHNSON SYNDROME [None]
